FAERS Safety Report 11252616 (Version 1)
Quarter: 2015Q3

REPORT INFORMATION
  Report Type: Spontaneous
  Country: BE (occurrence: BE)
  Receive Date: 20150708
  Receipt Date: 20150708
  Transmission Date: 20151125
  Serious: Yes (Other)
  Sender: FDA-Public Use
  Company Number: BE-GLAXOSMITHKLINE-BE2015GSK097593

PATIENT
  Age: 55 Year
  Sex: Female

DRUGS (2)
  1. TRAMETINIB [Suspect]
     Active Substance: TRAMETINIB
     Indication: PRODUCT USED FOR UNKNOWN INDICATION
     Dosage: 2 MG, 1D
     Dates: start: 201404
  2. DABRAFENIB [Suspect]
     Active Substance: DABRAFENIB
     Indication: PRODUCT USED FOR UNKNOWN INDICATION
     Dosage: 150 MG, BID
     Dates: start: 201311

REACTIONS (8)
  - Blindness [Recovered/Resolved]
  - Adhesion [Recovered/Resolved]
  - Uveitis [Recovered/Resolved]
  - Retinal detachment [Recovered/Resolved]
  - Vitritis [Recovered/Resolved]
  - Inflammation [Recovered/Resolved]
  - Chorioretinal disorder [Recovered/Resolved]
  - Chorioretinal folds [Recovered/Resolved]

NARRATIVE: CASE EVENT DATE: 201406
